FAERS Safety Report 7790585-X (Version None)
Quarter: 2011Q3

REPORT INFORMATION
  Report Type: 
  Country: None (occurrence: None)
  Receive Date: 20110930
  Receipt Date: 20110928
  Transmission Date: 20111222
  Serious: Yes (Life-Threatening, Hospitalization, Other)
  Sender: FDA-Public Use
  Company Number: PHHY2010BR14534

PATIENT
  Sex: Male

DRUGS (8)
  1. TEGRETOL-XR [Suspect]
     Indication: EPILEPSY
     Dosage: 3 DF, TID
     Route: 048
  2. CLOBAZAM [Concomitant]
     Indication: EPILEPSY
     Dosage: 3 DF, DAILY
     Route: 048
  3. PHENOBARBITAL TAB [Concomitant]
     Indication: EPILEPSY
     Dosage: 1 DF, QD
     Route: 048
     Dates: start: 20110601
  4. TOPAMAX [Concomitant]
     Indication: EPILEPSY
     Dosage: 3 DF, DAILY
     Route: 048
  5. TRILEPTAL [Suspect]
     Indication: EPILEPSY
     Dosage: 2 DF, UNK
     Route: 048
  6. TEGRETOL-XR [Suspect]
     Dosage: 2 DF, TID
     Route: 048
     Dates: start: 20100304
  7. TEGRETOL-XR [Suspect]
     Dosage: 7 DF, DAILY
     Route: 048
  8. PHENYTOIN [Concomitant]
     Indication: EPILEPSY
     Dosage: 3 DF, DAILY
     Route: 048
     Dates: start: 20110601

REACTIONS (5)
  - COMA [None]
  - DRUG INTOLERANCE [None]
  - STATUS EPILEPTICUS [None]
  - DIZZINESS [None]
  - EPILEPSY [None]
